FAERS Safety Report 23206748 (Version 1)
Quarter: 2023Q4

REPORT INFORMATION
  Report Type: Other
  Country: US (occurrence: US)
  Receive Date: 20231120
  Receipt Date: 20231120
  Transmission Date: 20240110
  Serious: No
  Sender: FDA-Public Use
  Company Number: US-UROVANT SCIENCES GMBH-202307-URV-001474

PATIENT
  Sex: Male

DRUGS (2)
  1. GEMTESA [Suspect]
     Active Substance: VIBEGRON
     Indication: Micturition urgency
     Dosage: UNK
     Route: 065
  2. GEMTESA [Suspect]
     Active Substance: VIBEGRON
     Indication: Pollakiuria

REACTIONS (1)
  - Inability to afford medication [Unknown]
